FAERS Safety Report 5432986-0 (Version None)
Quarter: 2007Q3

REPORT INFORMATION
  Report Type: 
  Country: None (occurrence: None)
  Receive Date: 20070828
  Receipt Date: 20070828
  Transmission Date: 20080115
  Serious: Yes (Other)
  Sender: FDA-Public Use
  Company Number: None

PATIENT
  Age: 50 Year
  Sex: Female
  Weight: 52.6173 kg

DRUGS (2)
  1. SINEMET [Suspect]
     Indication: PARKINSON'S DISEASE
     Dosage: 1 1/2 TAB 6 X A DAY PO
     Route: 048
     Dates: start: 20070619, end: 20070718
  2. SINEMET (CARBODOPA / LEVODOPA) 50/200MG SAME AS ABOVE [Suspect]
     Indication: PARKINSON'S DISEASE
     Dosage: 1 TAB 6 X A DAY PO
     Route: 048
     Dates: start: 20070619, end: 20070827

REACTIONS (2)
  - THERAPEUTIC RESPONSE UNEXPECTED WITH DRUG SUBSTITUTION [None]
  - TREMOR [None]
